FAERS Safety Report 14948860 (Version 1)
Quarter: 2018Q2

REPORT INFORMATION
  Report Type: Spontaneous
  Country: BR (occurrence: BR)
  Receive Date: 20180529
  Receipt Date: 20180529
  Transmission Date: 20180711
  Serious: Yes (Death, Hospitalization, Other)
  Sender: FDA-Public Use
  Company Number: BR-SHIRE-BR201820167

PATIENT

DRUGS (3)
  1. TRIMEB [Concomitant]
     Indication: PRODUCT USED FOR UNKNOWN INDICATION
  2. MESACOL MMX [Suspect]
     Active Substance: MESALAMINE
     Indication: COLITIS ULCERATIVE
     Dosage: 1 DF, 1X/DAY:QD
     Route: 048
  3. PREDNISONE. [Concomitant]
     Active Substance: PREDNISONE
     Indication: PRODUCT USED FOR UNKNOWN INDICATION

REACTIONS (4)
  - Underdose [Unknown]
  - Death [Fatal]
  - Anaemia [Unknown]
  - Leukaemia [Unknown]

NARRATIVE: CASE EVENT DATE: 20180320
